FAERS Safety Report 25332784 (Version 2)
Quarter: 2025Q2

REPORT INFORMATION
  Report Type: Spontaneous
  Country: US (occurrence: US)
  Receive Date: 20250519
  Receipt Date: 20250523
  Transmission Date: 20250716
  Serious: No
  Sender: SANOFI AVENTIS
  Company Number: US-SA-2025SA141740

PATIENT
  Age: 12 Year
  Sex: Male

DRUGS (1)
  1. DUPIXENT [Suspect]
     Active Substance: DUPILUMAB
     Route: 058

REACTIONS (3)
  - Injection site haemorrhage [Unknown]
  - Injection site urticaria [Unknown]
  - Injection site bruising [Unknown]

NARRATIVE: CASE EVENT DATE: 20250513
